FAERS Safety Report 17653748 (Version 11)
Quarter: 2022Q3

REPORT INFORMATION
  Report Type: Other
  Country: CA (occurrence: None)
  Receive Date: 20200410
  Receipt Date: 20220804
  Transmission Date: 20221026
  Serious: Yes (Hospitalization, Other)
  Sender: FDA-Public Use
  Company Number: CA-ROCHE-2576212

PATIENT
  Age: 62 Year
  Sex: Female

DRUGS (1)
  1. OCREVUS [Suspect]
     Active Substance: OCRELIZUMAB
     Indication: Relapsing-remitting multiple sclerosis
     Dosage: 300 MG AT DAY 0 AND 14, THEN 600 MG EVERY 6 MONTH
     Route: 042
     Dates: start: 20190925

REACTIONS (16)
  - Fall [Unknown]
  - Muscular weakness [Recovered/Resolved]
  - Skin fissures [Unknown]
  - Nephrolithiasis [Unknown]
  - Influenza [Recovered/Resolved]
  - Vulval abscess [Not Recovered/Not Resolved]
  - Cough [Not Recovered/Not Resolved]
  - Choking [Unknown]
  - Feeling hot [Unknown]
  - Furuncle [Not Recovered/Not Resolved]
  - Musculoskeletal pain [Not Recovered/Not Resolved]
  - Fall [Unknown]
  - Hypokinesia [Not Recovered/Not Resolved]
  - Blood glucose increased [Unknown]
  - Back pain [Unknown]
  - Teeth brittle [Unknown]

NARRATIVE: CASE EVENT DATE: 20200225
